FAERS Safety Report 9473134 (Version 1)
Quarter: 2013Q3

REPORT INFORMATION
  Report Type: Report from Study
  Country: US (occurrence: US)
  Receive Date: 20130823
  Receipt Date: 20130823
  Transmission Date: 20140515
  Serious: Yes (Hospitalization)
  Sender: FDA-Public Use
  Company Number: US-ABBOTT-13P-163-1134846-00

PATIENT
  Age: 64 Year
  Sex: Female
  Weight: 83.08 kg

DRUGS (21)
  1. HUMIRA [Suspect]
     Indication: RHEUMATOID ARTHRITIS
     Dates: end: 20130815
  2. METHOTREXATE [Concomitant]
     Indication: RHEUMATOID ARTHRITIS
  3. VOLTAREN GEL [Concomitant]
     Indication: RHEUMATOID ARTHRITIS
  4. PRAVASTATIN [Concomitant]
     Indication: ARTERIOSPASM CORONARY
     Dates: start: 2007
  5. GABAPENTIN [Concomitant]
     Indication: COMPLEX REGIONAL PAIN SYNDROME
     Dates: start: 2002
  6. CLONAZEPAM [Concomitant]
     Indication: COMPLEX REGIONAL PAIN SYNDROME
  7. CYCLOBENZAPRINE [Concomitant]
     Indication: ARTHRALGIA
  8. ACYCLOVIR [Concomitant]
     Indication: HERPES ZOSTER
  9. ACYCLOVIR [Concomitant]
     Indication: VARICELLA
  10. ACYCLOVIR [Concomitant]
     Indication: PROPHYLAXIS
  11. CETIRIZINE [Concomitant]
     Indication: SEASONAL ALLERGY
  12. FAMOTIDINE [Concomitant]
     Indication: GASTROOESOPHAGEAL REFLUX DISEASE
  13. CALCIUM PLUS VITAMIN D [Concomitant]
     Indication: VITAMIN SUPPLEMENTATION
  14. CALCIUM PLUS VITAMIN D [Concomitant]
     Indication: MINERAL SUPPLEMENTATION
  15. GLUCOASAMINE CONDROITIN [Concomitant]
     Indication: RHEUMATOID ARTHRITIS
  16. MULTIVITAMIN [Concomitant]
     Indication: VITAMIN SUPPLEMENTATION
  17. FISH OIL [Concomitant]
     Indication: SUPPLEMENTATION THERAPY
  18. ACAI [Concomitant]
     Indication: VITAMIN SUPPLEMENTATION
  19. TYLENOL [Concomitant]
     Indication: PAIN
  20. COQ10 [Concomitant]
     Indication: VITAMIN SUPPLEMENTATION
  21. MOISTURIZING EYE DROPS [Concomitant]
     Indication: DRY EYE

REACTIONS (11)
  - Arteriospasm coronary [Recovered/Resolved]
  - Basal cell carcinoma [Recovered/Resolved]
  - Sinusitis [Recovered/Resolved]
  - Mobility decreased [Recovered/Resolved]
  - Pain [Recovered/Resolved]
  - Diverticulum intestinal haemorrhagic [Recovered/Resolved]
  - Diverticulum [Not Recovered/Not Resolved]
  - Diverticulitis [Recovered/Resolved]
  - Diverticulitis [Recovered/Resolved]
  - Rectal haemorrhage [Recovered/Resolved]
  - Vascular rupture [Recovered/Resolved]
